FAERS Safety Report 4318614-6 (Version None)
Quarter: 2004Q1

REPORT INFORMATION
  Report Type: 
  Country: None (occurrence: None)
  Receive Date: 20040315
  Receipt Date: 20040301
  Transmission Date: 20041129
  Serious: Yes (Other)
  Sender: FDA-Public Use
  Company Number: GR-JNJFOC-20040301066

PATIENT
  Age: 53 Year
  Sex: Female

DRUGS (1)
  1. INFLIXIMAB (INFLIXIMAB, RECOMBINANT) LYOPHILIZED POWDER [Suspect]
     Indication: RHEUMATOID ARTHRITIS
     Dosage: 5 MG/KG, INTRAVENOUS
     Route: 042

REACTIONS (7)
  - ANAEMIA OF CHRONIC DISEASE [None]
  - ANTINUCLEAR ANTIBODY POSITIVE [None]
  - DNA ANTIBODY POSITIVE [None]
  - LICHEN PLANUS [None]
  - PRURITUS [None]
  - RASH ERYTHEMATOUS [None]
  - RASH PAPULOSQUAMOUS [None]
